FAERS Safety Report 9152695 (Version 1)
Quarter: 2013Q1

REPORT INFORMATION
  Report Type: Report from Study
  Country: US (occurrence: US)
  Receive Date: 20130308
  Receipt Date: 20130308
  Transmission Date: 20140127
  Serious: Yes (Hospitalization, Other)
  Sender: FDA-Public Use
  Company Number: US-ABBOTT-13P-163-1057419-00

PATIENT
  Age: 59 Year
  Sex: Male

DRUGS (13)
  1. HUMIRA [Suspect]
     Indication: RHEUMATOID ARTHRITIS
     Dosage: WAS SWITCHED FROM SYRINGE TO PEN ABOUT 2.5 YEARS AGO
     Dates: start: 201008
  2. HUMIRA [Suspect]
     Indication: RHEUMATOID ARTHRITIS
     Dates: end: 201008
  3. CALCIUM [Concomitant]
     Indication: MINERAL SUPPLEMENTATION
     Dosage: 500 MG DAILY
  4. FISH OIL [Concomitant]
     Indication: SUPPLEMENTATION THERAPY
  5. ADULT MVI WITH EXTRA CALCIUM SUPPLEMENT [Concomitant]
     Indication: VITAMIN SUPPLEMENTATION
     Dosage: DAILY
  6. EFFEXOR [Concomitant]
     Indication: PRODUCT USED FOR UNKNOWN INDICATION
  7. LASIX [Concomitant]
     Indication: CARDIAC DISORDER
  8. METOPROLOL [Concomitant]
     Indication: CARDIAC DISORDER
  9. ASA [Concomitant]
     Indication: CARDIAC DISORDER
     Dosage: 81 MG DAILY
  10. ATORUASTATIN [Concomitant]
     Indication: CARDIAC DISORDER
  11. DILTIAZEM ER [Concomitant]
     Indication: CARDIAC DISORDER
  12. CLOPIDOGREL [Concomitant]
     Indication: CARDIAC DISORDER
  13. HUMALOG [Concomitant]
     Indication: CARDIAC DISORDER
     Dosage: 30 UNITS AM AND 30 UNITS PM

REACTIONS (8)
  - Transient ischaemic attack [Unknown]
  - Angiopathy [Not Recovered/Not Resolved]
  - Myocardial infarction [Recovering/Resolving]
  - Injection site bruising [Unknown]
  - Injection site pain [Unknown]
  - Injection site pain [Unknown]
  - Injection site pain [Unknown]
  - Injection site pain [Unknown]
